FAERS Safety Report 8299242-7 (Version None)
Quarter: 2012Q2

REPORT INFORMATION
  Report Type: 
  Country: None (occurrence: None)
  Receive Date: 20120419
  Receipt Date: 20120417
  Transmission Date: 20120825
  Serious: No
  Sender: FDA-Public Use
  Company Number: US-PFIZER INC-2012096143

PATIENT
  Sex: Male
  Weight: 113 kg

DRUGS (3)
  1. LISINOPRIL AND HYDROCHLOROTHIAZIDE [Concomitant]
     Indication: BLOOD PRESSURE ABNORMAL
     Dosage: 20/25 MG, DAILY
  2. CHANTIX [Suspect]
     Indication: SMOKING CESSATION THERAPY
     Dosage: UNK
     Route: 048
     Dates: start: 20120101, end: 20120401
  3. PSEUDOEPHEDRINE HYDROCHLORIDE [Interacting]
     Indication: SINUS DISORDER
     Dosage: 120 MG, DAILY

REACTIONS (2)
  - NAUSEA [None]
  - DRUG INTERACTION [None]
